FAERS Safety Report 19173057 (Version 6)
Quarter: 2022Q1

REPORT INFORMATION
  Report Type: Report from Study
  Country: US (occurrence: US)
  Receive Date: 20210423
  Receipt Date: 20220222
  Transmission Date: 20220423
  Serious: No
  Sender: FDA-Public Use
  Company Number: NVSC2021US086431

PATIENT
  Sex: Female

DRUGS (1)
  1. COSENTYX [Suspect]
     Active Substance: SECUKINUMAB
     Indication: Psoriasis
     Dosage: UNK
     Route: 065
     Dates: start: 2020

REACTIONS (5)
  - Injection site bruising [Unknown]
  - Device defective [Unknown]
  - Arthralgia [Unknown]
  - Psoriasis [Unknown]
  - Injection site haemorrhage [Unknown]
